FAERS Safety Report 18190840 (Version 2)
Quarter: 2020Q3

REPORT INFORMATION
  Report Type: Report from Study
  Country: CN (occurrence: CN)
  Receive Date: 20200824
  Receipt Date: 20200831
  Transmission Date: 20201103
  Serious: Yes (Hospitalization)
  Sender: FDA-Public Use
  Company Number: CN-GILEAD-2020-0491533

PATIENT
  Sex: Male
  Weight: 74 kg

DRUGS (15)
  1. SULFAMETHOXAZOLE [Suspect]
     Active Substance: SULFAMETHOXAZOLE
     Indication: INFECTION PROPHYLAXIS
     Route: 048
     Dates: start: 20200725, end: 20200815
  2. HEPARIN CALCIUM [Concomitant]
     Active Substance: HEPARIN CALCIUM
     Indication: FIBRIN D DIMER INCREASED
     Route: 058
     Dates: start: 20200725, end: 20200806
  3. ACETYLCYSTEINE. [Concomitant]
     Active Substance: ACETYLCYSTEINE
     Indication: PRODUCTIVE COUGH
     Route: 048
     Dates: start: 20200725, end: 20200725
  4. EUCALYPTOL, LIMONENE AND PINENE [Concomitant]
     Indication: PRODUCTIVE COUGH
     Route: 048
     Dates: start: 20200725, end: 20200725
  5. PREDNISONE ACETATE [Concomitant]
     Active Substance: PREDNISONE ACETATE
     Indication: PROPHYLAXIS
     Route: 048
     Dates: start: 20200802, end: 20200806
  6. THYMOPOLYPEPTIDES [Concomitant]
     Indication: IMMUNE ENHANCEMENT THERAPY
     Route: 041
     Dates: start: 20200813, end: 20200815
  7. CEFOTAXIME SODIUM;SULBACTAM [Concomitant]
     Indication: PNEUMONIA
     Route: 041
     Dates: start: 20200725, end: 20200725
  8. SODIUM BICARBONATE. [Concomitant]
     Active Substance: SODIUM BICARBONATE
     Indication: PH URINE INCREASED
     Route: 048
     Dates: start: 20200725, end: 20200815
  9. MEROPENEM. [Concomitant]
     Active Substance: MEROPENEM
     Indication: PNEUMONIA
     Route: 041
     Dates: start: 20200725, end: 20200804
  10. NYSTATIN. [Concomitant]
     Active Substance: NYSTATIN
     Indication: ORAL FUNGAL INFECTION
     Route: 050
     Dates: start: 20200729, end: 20200815
  11. RABEPRAZOLE SODIUM. [Concomitant]
     Active Substance: RABEPRAZOLE SODIUM
     Indication: PROPHYLAXIS AGAINST GASTROINTESTINAL ULCER
     Route: 048
     Dates: start: 20200802, end: 20200815
  12. OSELTAMIVIR PHOSPHATE. [Concomitant]
     Active Substance: OSELTAMIVIR PHOSPHATE
     Indication: ANTIVIRAL TREATMENT
     Route: 048
     Dates: start: 20200725, end: 20200725
  13. MOXIFLOXACIN HYDROCHLORIDE. [Concomitant]
     Active Substance: MOXIFLOXACIN HYDROCHLORIDE
     Dosage: UNK
     Route: 048
     Dates: start: 20200725, end: 20200725
  14. ELVITEGRAVIR/COBICISTAT/EMTRICITABINE/TENOFOVIR ALAFENAMIDE [Suspect]
     Active Substance: COBICISTAT\ELVITEGRAVIR\EMTRICITABINE\TENOFOVIR
     Indication: HIV INFECTION
     Dosage: 1 DOSAGE FORM, QD
     Route: 048
     Dates: start: 20200811
  15. MOXIFLOXACIN HYDROCHLORIDE. [Concomitant]
     Active Substance: MOXIFLOXACIN HYDROCHLORIDE
     Indication: PNEUMONIA
     Route: 048
     Dates: start: 20200728, end: 20200813

REACTIONS (2)
  - Dermatitis allergic [Recovering/Resolving]
  - Dermatitis allergic [Recovered/Resolved]

NARRATIVE: CASE EVENT DATE: 20200816
